FAERS Safety Report 13799539 (Version 1)
Quarter: 2017Q3

REPORT INFORMATION
  Report Type: Spontaneous
  Country: US (occurrence: US)
  Receive Date: 20170727
  Receipt Date: 20170727
  Transmission Date: 20171127
  Serious: No
  Sender: FDA-Public Use
  Company Number: US-JNJFOC-20170510447

PATIENT
  Age: 5 Decade
  Sex: Female

DRUGS (4)
  1. BIOTIN [Concomitant]
     Active Substance: BIOTIN
     Indication: ALOPECIA
     Route: 065
  2. WOMENS ROGAINE UNSCENTED [Suspect]
     Active Substance: MINOXIDIL
     Route: 061
  3. WOMENS ROGAINE UNSCENTED [Suspect]
     Active Substance: MINOXIDIL
     Indication: ALOPECIA
     Dosage: FULL CAPFUL
     Route: 061
     Dates: start: 201603
  4. MULTIVITAMINS [Concomitant]
     Active Substance: VITAMINS
     Indication: ROUTINE HEALTH MAINTENANCE
     Route: 065

REACTIONS (4)
  - Onychoclasis [Not Recovered/Not Resolved]
  - Nail disorder [Not Recovered/Not Resolved]
  - Overdose [Not Recovered/Not Resolved]
  - Onychomadesis [Not Recovered/Not Resolved]

NARRATIVE: CASE EVENT DATE: 201603
